FAERS Safety Report 19988002 (Version 8)
Quarter: 2022Q1

REPORT INFORMATION
  Report Type: Report from Study
  Country: ES (occurrence: None)
  Receive Date: 20211022
  Receipt Date: 20220210
  Transmission Date: 20220423
  Serious: Yes (Death, Hospitalization)
  Sender: FDA-Public Use
  Company Number: ES-EISAI MEDICAL RESEARCH-EC-2021-100825

PATIENT
  Age: 76 Year
  Sex: Female
  Weight: 69.4 kg

DRUGS (16)
  1. LENVATINIB [Suspect]
     Active Substance: LENVATINIB
     Indication: Non-small cell lung cancer metastatic
     Dosage: STARTING DOSE AT 24 MILLIGRAM, FLUCTUATED DOSAGE.
     Route: 048
     Dates: start: 20200422, end: 20210920
  2. LENVATINIB [Suspect]
     Active Substance: LENVATINIB
     Route: 048
     Dates: start: 20210921, end: 20210921
  3. ALLOPURINOL [Concomitant]
     Active Substance: ALLOPURINOL
     Dates: start: 20111124, end: 20211014
  4. CARVEDILOL [Concomitant]
     Active Substance: CARVEDILOL
     Dates: start: 20131217
  5. SPIRIVA [Concomitant]
     Active Substance: TIOTROPIUM BROMIDE MONOHYDRATE
     Dates: start: 20151106
  6. EZETIMIBE [Concomitant]
     Active Substance: EZETIMIBE
     Dates: start: 20160125
  7. PITAVASTATIN [Concomitant]
     Active Substance: PITAVASTATIN
     Dates: start: 20180130
  8. HIBOR [Concomitant]
     Route: 058
     Dates: start: 20190109
  9. ATROVENT [Concomitant]
     Active Substance: IPRATROPIUM BROMIDE
     Dates: start: 20190215
  10. AMLODIPINE [Concomitant]
     Active Substance: AMLODIPINE BESYLATE
     Dates: start: 20190515
  11. FUROSEMIDE [Concomitant]
     Active Substance: FUROSEMIDE
     Dates: start: 20190711
  12. HYDROCORTISONE [Concomitant]
     Active Substance: HYDROCORTISONE
     Dates: start: 20190716
  13. TRAMADOL HYDROCHLORIDE [Concomitant]
     Active Substance: TRAMADOL HYDROCHLORIDE
     Dates: start: 20200128
  14. DOMPERIDONE [Concomitant]
     Active Substance: DOMPERIDONE
     Dates: start: 20200506, end: 20211014
  15. FENTANYL [Concomitant]
     Active Substance: FENTANYL
     Dates: start: 20210721
  16. LEVOTHYROXINE SODIUM [Concomitant]
     Active Substance: LEVOTHYROXINE SODIUM
     Dates: start: 20210330, end: 20211014

REACTIONS (3)
  - Pulmonary embolism [Recovering/Resolving]
  - Cardio-respiratory arrest [Fatal]
  - Pelvic fracture [Recovering/Resolving]

NARRATIVE: CASE EVENT DATE: 20210925
